FAERS Safety Report 17916118 (Version 1)
Quarter: 2020Q2

REPORT INFORMATION
  Report Type: Spontaneous
  Country: FR (occurrence: FR)
  Receive Date: 20200619
  Receipt Date: 20200619
  Transmission Date: 20200714
  Serious: Yes (Other)
  Sender: FDA-Public Use
  Company Number: FR-LUPIN PHARMACEUTICALS INC.-2019-08979

PATIENT
  Age: 26 Year
  Sex: Female

DRUGS (10)
  1. OXYCODONE [Suspect]
     Active Substance: OXYCODONE
     Indication: PAIN
     Dosage: UNK
     Route: 048
     Dates: start: 201602
  2. MORPHINE [Suspect]
     Active Substance: MORPHINE
     Indication: PAIN
     Dosage: UNK
     Route: 048
     Dates: start: 201602
  3. MORPHINE [Suspect]
     Active Substance: MORPHINE
     Dosage: UNK, 10 BOLUSES DAILY
     Route: 040
  4. OXYCODONE [Suspect]
     Active Substance: OXYCODONE
     Dosage: UNK, QD, TAKING 20 BOLUSES DAILY
     Route: 042
  5. OXYCODONE [Suspect]
     Active Substance: OXYCODONE
     Dosage: UNK, TAKING 10 BOLUSES DAILY
     Route: 042
  6. MORPHINE [Suspect]
     Active Substance: MORPHINE
     Dosage: UNK, 0.5 TO 1 MG/HR
     Route: 042
     Dates: start: 201603
  7. MORPHINE [Suspect]
     Active Substance: MORPHINE
     Dosage: UNK, QD, 20 BOLUSES DAILY
     Route: 040
  8. OXYCODONE [Suspect]
     Active Substance: OXYCODONE
     Dosage: UNK, 0.5 TO 1 MG/HR
     Route: 042
     Dates: start: 201603
  9. MORPHINE [Suspect]
     Active Substance: MORPHINE
     Dosage: 3 MILLIGRAM
     Route: 040
     Dates: start: 2016
  10. OXYCODONE [Suspect]
     Active Substance: OXYCODONE
     Dosage: 3 MILLIGRAM, BOLUS
     Route: 042
     Dates: start: 2016

REACTIONS (9)
  - Malaise [Recovered/Resolved]
  - Drug dependence [Recovered/Resolved]
  - Hyperhidrosis [Recovered/Resolved]
  - Somnolence [Recovered/Resolved]
  - Abdominal pain [Recovered/Resolved]
  - Incorrect product administration duration [Unknown]
  - Hyperaesthesia [Recovered/Resolved]
  - Withdrawal syndrome [Recovered/Resolved]
  - Allodynia [Recovered/Resolved]
